FAERS Safety Report 4698035-7 (Version None)
Quarter: 2005Q2

REPORT INFORMATION
  Report Type: 
  Country: None (occurrence: None)
  Receive Date: 20050621
  Receipt Date: 20050616
  Transmission Date: 20051028
  Serious: Yes (Death)
  Sender: FDA-Public Use
  Company Number: TCI2005A02799

PATIENT
  Age: 64 Year
  Sex: Male

DRUGS (5)
  1. LEUPROLIDE ACETATE [Suspect]
     Indication: PROSTATE CANCER STAGE I
     Dosage: 3.75 MG (3.75 MG,1 IN 28 D),SUBCUTANEOUS
     Route: 058
     Dates: start: 19940401
  2. HONVAN (FOSFESTROL TETRASODIUM) (PREPARATION FOR ORAL) [Suspect]
     Indication: PROSTATE CANCER STAGE I
     Dosage: 300 MG (300 MG,1D),PER ORAL;200 MG (200 MG,1 D);100 MG (100 MG,1 D);300 MG (300 MG,1 D)
     Route: 048
     Dates: start: 19891211, end: 19900101
  3. HONVAN (FOSFESTROL TETRASODIUM) (PREPARATION FOR ORAL) [Suspect]
     Indication: PROSTATE CANCER STAGE I
     Dosage: 300 MG (300 MG,1D),PER ORAL;200 MG (200 MG,1 D);100 MG (100 MG,1 D);300 MG (300 MG,1 D)
     Route: 048
     Dates: start: 19900601, end: 19910101
  4. HONVAN (FOSFESTROL TETRASODIUM) (PREPARATION FOR ORAL) [Suspect]
     Indication: PROSTATE CANCER STAGE I
     Dosage: 300 MG (300 MG,1D),PER ORAL;200 MG (200 MG,1 D);100 MG (100 MG,1 D);300 MG (300 MG,1 D)
     Route: 048
     Dates: start: 19910101, end: 19940101
  5. HONVAN (FOSFESTROL TETRASODIUM) (PREPARATION FOR ORAL) [Suspect]
     Indication: PROSTATE CANCER STAGE I
     Dosage: 300 MG (300 MG,1D),PER ORAL;200 MG (200 MG,1 D);100 MG (100 MG,1 D);300 MG (300 MG,1 D)
     Route: 048
     Dates: start: 19940401, end: 29941201

REACTIONS (4)
  - CONDITION AGGRAVATED [None]
  - HEPATIC NEOPLASM MALIGNANT [None]
  - METASTASES TO BONE [None]
  - THERAPY NON-RESPONDER [None]
